FAERS Safety Report 19766014 (Version 1)
Quarter: 2021Q3

REPORT INFORMATION
  Report Type: Spontaneous
  Country: US (occurrence: US)
  Receive Date: 20210827
  Receipt Date: 20210827
  Transmission Date: 20211014
  Serious: Yes (Hospitalization)
  Sender: FDA-Public Use
  Company Number: None

PATIENT
  Sex: Female

DRUGS (2)
  1. DEFERASIROX. [Concomitant]
     Active Substance: DEFERASIROX
  2. DEFERASIROX 180MG [Suspect]
     Active Substance: DEFERASIROX
     Indication: SICKLE CELL DISEASE
     Route: 048
     Dates: start: 20200602

REACTIONS (3)
  - Weight increased [None]
  - Therapy interrupted [None]
  - Sickle cell anaemia with crisis [None]
